FAERS Safety Report 7506958-6 (Version None)
Quarter: 2011Q2

REPORT INFORMATION
  Report Type: 
  Country: None (occurrence: None)
  Receive Date: 20110526
  Receipt Date: 20110517
  Transmission Date: 20111010
  Serious: Yes (Hospitalization, Disabling, Other)
  Sender: FDA-Public Use
  Company Number: US-ASTRAZENECA-2011SE17663

PATIENT
  Age: 67 Year
  Sex: Female

DRUGS (3)
  1. CRESTOR [Suspect]
     Route: 048
  2. SYMBICORT [Concomitant]
     Dosage: 160/4.5 MCG TWO PUFFS TWO TIMES A DAY
     Route: 055
  3. NEXIUM [Concomitant]
     Route: 048

REACTIONS (7)
  - PAIN [None]
  - DISABILITY [None]
  - SPINAL COLUMN STENOSIS [None]
  - DYSSTASIA [None]
  - ASTHMA [None]
  - SURGERY [None]
  - ACTIVITIES OF DAILY LIVING IMPAIRED [None]
